FAERS Safety Report 10181794 (Version 1)
Quarter: 2014Q2

REPORT INFORMATION
  Report Type: Spontaneous
  Country: PH (occurrence: PH)
  Receive Date: 20140519
  Receipt Date: 20140519
  Transmission Date: 20141212
  Serious: Yes (Other)
  Sender: FDA-Public Use
  Company Number: PH-009507513-1405PHL007628

PATIENT
  Sex: Male

DRUGS (1)
  1. JANUMET [Suspect]
     Dosage: 1 TABLET ONCE A DAY,50/850 MG
     Route: 048
     Dates: end: 201405

REACTIONS (2)
  - Chest pain [Unknown]
  - Inappropriate schedule of drug administration [Unknown]
